FAERS Safety Report 24412623 (Version 3)
Quarter: 2024Q4

REPORT INFORMATION
  Report Type: Report from Study
  Country: GR (occurrence: GR)
  Receive Date: 20241008
  Receipt Date: 20241213
  Transmission Date: 20250115
  Serious: No
  Sender: TAKEDA
  Company Number: GR-TAKEDA-2021TUS049347

PATIENT
  Age: 40 Year
  Sex: Female

DRUGS (4)
  1. PARATHYROID HORMONE [Suspect]
     Active Substance: PARATHYROID HORMONE
     Indication: Hypoparathyroidism
     Dosage: 100 MILLILITER
  2. PARATHYROID HORMONE [Suspect]
     Active Substance: PARATHYROID HORMONE
     Dosage: 75 MICROGRAM, QD
     Dates: start: 20210215
  3. PARATHYROID HORMONE [Suspect]
     Active Substance: PARATHYROID HORMONE
     Dosage: 100 MILLILITER
  4. PARATHYROID HORMONE [Suspect]
     Active Substance: PARATHYROID HORMONE
     Dosage: 100 MILLIGRAM, QD

REACTIONS (7)
  - Device issue [Recovered/Resolved]
  - Incorrect dose administered [Unknown]
  - Expired device used [Not Recovered/Not Resolved]
  - Device defective [Unknown]
  - Hypoaesthesia [Recovered/Resolved]
  - Device malfunction [Unknown]
  - Vitamin D decreased [Not Recovered/Not Resolved]

NARRATIVE: CASE EVENT DATE: 20210701
